FAERS Safety Report 13274260 (Version 2)
Quarter: 2017Q1

REPORT INFORMATION
  Report Type: Spontaneous
  Country: FR (occurrence: FR)
  Receive Date: 20170227
  Receipt Date: 20170301
  Transmission Date: 20170428
  Serious: Yes (Hospitalization)
  Sender: FDA-Public Use
  Company Number: FR-PFIZER INC-2017084989

PATIENT
  Age: 49 Year
  Sex: Female

DRUGS (4)
  1. DECONTRACTYL /00140701/ [Suspect]
     Active Substance: MEPHENESIN
  2. CODEINE [Suspect]
     Active Substance: CODEINE
  3. LEXOMIL [Suspect]
     Active Substance: BROMAZEPAM
  4. LYRICA [Suspect]
     Active Substance: PREGABALIN

REACTIONS (1)
  - Drug abuse [Unknown]
